FAERS Safety Report 9687988 (Version 1)
Quarter: 2013Q4

REPORT INFORMATION
  Report Type: Spontaneous
  Country: US (occurrence: None)
  Receive Date: 20131113
  Receipt Date: 20131113
  Transmission Date: 20140711
  Serious: No
  Sender: FDA-Public Use
  Company Number: None

PATIENT
  Age: 59 Year
  Sex: Male

DRUGS (2)
  1. LEVAQUIN [Suspect]
     Indication: SINUSITIS
     Dates: start: 20111219, end: 20111224
  2. ANCEF [Suspect]
     Indication: PROPHYLAXIS
     Dates: start: 20111227, end: 20111227

REACTIONS (1)
  - Drug-induced liver injury [None]
